FAERS Safety Report 16066481 (Version 2)
Quarter: 2019Q1

REPORT INFORMATION
  Report Type: Spontaneous
  Country: GB (occurrence: GB)
  Receive Date: 20190313
  Receipt Date: 20190319
  Transmission Date: 20190418
  Serious: Yes (Other)
  Sender: FDA-Public Use
  Company Number: GB-PFIZER INC-2019110312

PATIENT
  Age: 67 Year
  Sex: Male

DRUGS (2)
  1. SIMVASTATIN. [Interacting]
     Active Substance: SIMVASTATIN
     Dosage: 40 MG, UNK
     Route: 048
     Dates: start: 2015
  2. AMIODARONE HCL [Suspect]
     Active Substance: AMIODARONE HYDROCHLORIDE
     Dosage: UNK
     Route: 065

REACTIONS (2)
  - Myalgia [Unknown]
  - Labelled drug-drug interaction medication error [Unknown]
